FAERS Safety Report 5965459-7 (Version None)
Quarter: 2008Q4

REPORT INFORMATION
  Report Type: 
  Country: None (occurrence: None)
  Receive Date: 20081125
  Receipt Date: 20071108
  Transmission Date: 20090506
  Serious: No
  Sender: FDA-Public Use
  Company Number: US-AMGEN-QUU250957

PATIENT
  Sex: Female

DRUGS (1)
  1. ENBREL [Suspect]
     Indication: PSORIATIC ARTHROPATHY
     Route: 058
     Dates: start: 20021203

REACTIONS (5)
  - ARTHRALGIA [None]
  - COUGH [None]
  - HYPOVOLAEMIA [None]
  - JOINT SWELLING [None]
  - NASOPHARYNGITIS [None]
